FAERS Safety Report 5166247-4 (Version None)
Quarter: 2006Q4

REPORT INFORMATION
  Report Type: 
  Country: None (occurrence: None)
  Receive Date: 20060830
  Receipt Date: 20060607
  Transmission Date: 20070319
  Serious: No
  Sender: FDA-Public Use
  Company Number: 226084

PATIENT
  Sex: Male

DRUGS (1)
  1. XOLAIR [Suspect]
     Indication: ASTHMA
     Dosage: 300 UNK, Q2W, SUBCUTANEOUS
     Route: 058
     Dates: start: 20060317, end: 20060607

REACTIONS (1)
  - MUSCLE DISORDER [None]
